FAERS Safety Report 8219190-8 (Version None)
Quarter: 2012Q1

REPORT INFORMATION
  Report Type: 
  Country: None (occurrence: None)
  Receive Date: 20120319
  Receipt Date: 20120313
  Transmission Date: 20120608
  Serious: Yes (Life-Threatening, Hospitalization)
  Sender: FDA-Public Use
  Company Number: US-BAYER-2011-100291

PATIENT
  Sex: Female
  Weight: 88.435 kg

DRUGS (5)
  1. BEYAZ [Suspect]
     Indication: POLYCYSTIC OVARIES
     Dosage: UNK
     Dates: start: 20110401, end: 20110704
  2. BEYAZ [Suspect]
     Indication: CONTRACEPTION
  3. RONDEC [Concomitant]
     Dosage: UNK
     Route: 048
     Dates: start: 20110701
  4. VENTOLIN [Concomitant]
     Dosage: UNK
     Route: 055
     Dates: start: 20110701
  5. YAZ [Suspect]
     Dosage: UNK
     Route: 048
     Dates: start: 20110401, end: 20110704

REACTIONS (11)
  - PULMONARY EMBOLISM [None]
  - ANHEDONIA [None]
  - PAIN [None]
  - DEEP VEIN THROMBOSIS [None]
  - LUNG DISORDER [None]
  - INJURY [None]
  - PULMONARY THROMBOSIS [None]
  - PNEUMONIA [None]
  - PNEUMOTHORAX [None]
  - ANXIETY [None]
  - PULMONARY INFARCTION [None]
